FAERS Safety Report 22381867 (Version 2)
Quarter: 2023Q2

REPORT INFORMATION
  Report Type: Report from Study
  Country: US (occurrence: US)
  Receive Date: 20230530
  Receipt Date: 20230531
  Transmission Date: 20230722
  Serious: No
  Sender: FDA-Public Use
  Company Number: US-002147023-NVSC2023US122754

PATIENT
  Sex: Male
  Weight: 97.506 kg

DRUGS (10)
  1. CLINDAMYCIN [Suspect]
     Active Substance: CLINDAMYCIN
     Indication: Hidradenitis
     Dosage: UNK
     Route: 065
  2. METFORMIN [Suspect]
     Active Substance: METFORMIN HYDROCHLORIDE
     Indication: Hidradenitis
     Dosage: UNK
     Route: 065
  3. METHOTREXATE [Suspect]
     Active Substance: METHOTREXATE
     Indication: Product used for unknown indication
     Dosage: UNK
     Route: 065
  4. KETOROLAC TROMETHAMINE [Suspect]
     Active Substance: KETOROLAC TROMETHAMINE
     Indication: Hidradenitis
     Dosage: UNK
     Route: 065
  5. COSENTYX [Suspect]
     Active Substance: SECUKINUMAB
     Indication: Product used for unknown indication
     Dosage: UNK
     Route: 065
  6. ACCUTANE [Suspect]
     Active Substance: ISOTRETINOIN
     Indication: Hidradenitis
     Dosage: UNK
     Route: 065
  7. ISOTRETINOIN [Suspect]
     Active Substance: ISOTRETINOIN
     Indication: Hidradenitis
     Dosage: UNK
     Route: 065
  8. BENZOYL PEROXIDE [Suspect]
     Active Substance: BENZOYL PEROXIDE
     Indication: Hidradenitis
     Dosage: UNK
     Route: 065
  9. DOXYCYCLINE [Suspect]
     Active Substance: DOXYCYCLINE
     Indication: Hidradenitis
     Dosage: UNK
     Route: 065
  10. BACTRIM [Suspect]
     Active Substance: SULFAMETHOXAZOLE\TRIMETHOPRIM
     Indication: Hidradenitis
     Dosage: UNK
     Route: 065

REACTIONS (11)
  - Nodule [Recovering/Resolving]
  - Tenderness [Unknown]
  - Pain [Unknown]
  - Rash [Unknown]
  - Pruritus [Unknown]
  - Lipoma [Recovered/Resolved]
  - Jaw cyst [Unknown]
  - Cyst [Unknown]
  - Genital rash [Unknown]
  - Drug ineffective [Unknown]
  - Off label use [Unknown]
